FAERS Safety Report 6004204-6 (Version None)
Quarter: 2008Q4

REPORT INFORMATION
  Report Type: 
  Country: None (occurrence: None)
  Receive Date: 20081216
  Receipt Date: 20081205
  Transmission Date: 20090506
  Serious: Yes (Hospitalization)
  Sender: FDA-Public Use
  Company Number: US-BIOGENIDEC-2007BI024758

PATIENT
  Age: 47 Year
  Sex: Male
  Weight: 94 kg

DRUGS (6)
  1. AVONEX [Suspect]
     Indication: MULTIPLE SCLEROSIS
     Route: 030
     Dates: start: 19960501, end: 20080101
  2. AVONEX [Suspect]
     Route: 030
     Dates: start: 20080101, end: 20080101
  3. AVONEX [Suspect]
     Route: 030
     Dates: start: 20080701, end: 20080101
  4. AVONEX [Suspect]
     Route: 030
     Dates: start: 20080101, end: 20080101
  5. AVONEX [Suspect]
     Route: 030
     Dates: start: 20081101, end: 20081101
  6. AVONEX [Suspect]
     Route: 030
     Dates: start: 20081101

REACTIONS (6)
  - INFLUENZA LIKE ILLNESS [None]
  - MEDICAL DEVICE COMPLICATION [None]
  - MEMORY IMPAIRMENT [None]
  - MUSCLE SPASMS [None]
  - OEDEMA PERIPHERAL [None]
  - ROAD TRAFFIC ACCIDENT [None]
